FAERS Safety Report 8836716 (Version 1)
Quarter: 2012Q4

REPORT INFORMATION
  Report Type: Spontaneous
  Country: US (occurrence: None)
  Receive Date: 20121010
  Receipt Date: 20121010
  Transmission Date: 20130627
  Serious: Yes (Hospitalization)
  Sender: FDA-Public Use
  Company Number: 2012P1060260

PATIENT
  Age: 60 Year
  Sex: Female

DRUGS (8)
  1. PARNATE [Suspect]
     Dates: start: 2004, end: 20120902
  2. PARNATE [Suspect]
     Dates: start: 2004, end: 20120902
  3. PHENELZINE [Suspect]
     Dates: start: 20120903, end: 20120920
  4. PHENELZINE [Suspect]
     Dates: start: 20120911, end: 20120920
  5. SEROQUEL [Concomitant]
  6. MEFORMIN [Concomitant]
  7. GLIPIZIDE [Concomitant]
  8. BABY ASPIRIN [Concomitant]

REACTIONS (5)
  - Pruritus [None]
  - Rash [None]
  - Dyspnoea [None]
  - Contusion [None]
  - Nerve compression [None]
